FAERS Safety Report 5008502-4 (Version None)
Quarter: 2006Q2

REPORT INFORMATION
  Report Type: 
  Country: None (occurrence: None)
  Receive Date: 20060522
  Receipt Date: 20060522
  Transmission Date: 20061013
  Serious: Yes (Hospitalization)
  Sender: FDA-Public Use
  Company Number: None

PATIENT
  Sex: Male
  Weight: 71.9 kg

DRUGS (2)
  1. GLEEVEC [Suspect]
     Indication: GLIOBLASTOMA MULTIFORME
     Dosage: 500 MG BID X 8D Q 28D ORAL
     Route: 048
     Dates: start: 20060316, end: 20060417
  2. TEMODAR [Suspect]
     Dosage: 200 MGM2 DAILY X 5D Q28 D ORAL
     Route: 048
     Dates: start: 20060316, end: 20060417

REACTIONS (6)
  - CHILLS [None]
  - INFECTION [None]
  - NAUSEA [None]
  - PYREXIA [None]
  - THROMBOSIS [None]
  - VOMITING [None]
